FAERS Safety Report 6683549-0 (Version None)
Quarter: 2010Q2

REPORT INFORMATION
  Report Type: 
  Country: None (occurrence: None)
  Receive Date: 20100415
  Receipt Date: 20100405
  Transmission Date: 20101027
  Serious: Yes (Other)
  Sender: FDA-Public Use
  Company Number: CA-AMGEN-QUU401910

PATIENT
  Sex: Female

DRUGS (5)
  1. ENBREL [Suspect]
     Indication: PSORIATIC ARTHROPATHY
     Dates: start: 20020509
  2. MS CONTIN [Concomitant]
  3. OXYCET [Concomitant]
  4. PAXIL [Concomitant]
  5. LOSEC [Concomitant]

REACTIONS (2)
  - ARTHRITIS [None]
  - COLITIS ULCERATIVE [None]
